FAERS Safety Report 6836199-7 (Version None)
Quarter: 2010Q3

REPORT INFORMATION
  Report Type: 
  Country: None (occurrence: None)
  Receive Date: 20100713
  Receipt Date: 20100622
  Transmission Date: 20110219
  Serious: Yes (Hospitalization, Other)
  Sender: FDA-Public Use
  Company Number: US-ABBOTT-10P-163-0653228-00

PATIENT
  Age: 16 Year
  Sex: Female

DRUGS (5)
  1. HUMIRA [Suspect]
     Indication: CROHN'S DISEASE
     Dates: start: 20090901
  2. HUMIRA [Suspect]
     Dates: start: 20100201
  3. HUMIRA [Suspect]
  4. ENDOCORT [Concomitant]
     Indication: ABDOMINAL PAIN UPPER
  5. AMITRIPTYLINE HYDROCHLORIDE [Concomitant]
     Indication: ABDOMINAL PAIN UPPER

REACTIONS (4)
  - ADMINISTRATION SITE PAIN [None]
  - LARGE INTESTINE PERFORATION [None]
  - ROAD TRAFFIC ACCIDENT [None]
  - SPINAL FRACTURE [None]
